FAERS Safety Report 8187270-1 (Version None)
Quarter: 2012Q1

REPORT INFORMATION
  Report Type: 
  Country: None (occurrence: None)
  Receive Date: 20120306
  Receipt Date: 20120224
  Transmission Date: 20120608
  Serious: Yes (Other)
  Sender: FDA-Public Use
  Company Number: US-BAYER-2011-093396

PATIENT
  Age: 22 Year
  Sex: Female
  Weight: 79.365 kg

DRUGS (12)
  1. RANITIDINE [Concomitant]
     Indication: REFLUX GASTRITIS
     Dosage: 150 MG, BID
     Route: 048
     Dates: start: 20081201, end: 20091201
  2. LORAZEPAM [Concomitant]
     Indication: ANXIETY
     Dosage: 0.5 MG, UNK
     Route: 048
     Dates: start: 20081101, end: 20091201
  3. CYCLOBENZAPRINE [Concomitant]
     Dosage: 5 MG, UNK
     Route: 048
     Dates: start: 20090511, end: 20090609
  4. LORTAB [Concomitant]
     Dosage: 500 MG, 4-6 TIMES /DAY
     Route: 048
     Dates: start: 20090807
  5. FLEXERIL [Concomitant]
     Dosage: 10 MG, HS
     Route: 048
     Dates: start: 20090807
  6. YAZ [Suspect]
     Indication: PREMENSTRUAL SYNDROME
     Dosage: UNK
     Dates: start: 20080301, end: 20091201
  7. LEVOTHYROXINE SODIUM [Concomitant]
     Dosage: UNK
     Dates: start: 20080801
  8. SEROQUEL [Concomitant]
     Dosage: 200 MG, DAILY
     Route: 048
     Dates: start: 20090511, end: 20090609
  9. ACETAMINOPHEN AND HYDROCODONE BITARTRATE [Concomitant]
     Dosage: UNK UNK, QID
     Dates: end: 20090818
  10. BACLOFEN [Concomitant]
     Dosage: 20 MG, TID
     Route: 048
     Dates: start: 20090511, end: 20090808
  11. LITHIUM CARBONATE [Concomitant]
     Indication: BIPOLAR DISORDER
     Dosage: 300 MG, UNK
     Route: 048
     Dates: start: 20081101, end: 20091101
  12. IBUPROFEN TABLETS [Concomitant]
     Dosage: 600 MG, TID
     Route: 048
     Dates: start: 20090511, end: 20090801

REACTIONS (9)
  - CHOLELITHIASIS [None]
  - INJURY [None]
  - CHOLECYSTITIS CHRONIC [None]
  - ABDOMINAL PAIN [None]
  - PAIN [None]
  - ANXIETY [None]
  - GENERAL PHYSICAL HEALTH DETERIORATION [None]
  - EMOTIONAL DISTRESS [None]
  - MENTAL DISORDER [None]
